FAERS Safety Report 20573773 (Version 1)
Quarter: 2022Q1

REPORT INFORMATION
  Report Type: Spontaneous
  Country: US (occurrence: US)
  Receive Date: 20220309
  Receipt Date: 20220309
  Transmission Date: 20220423
  Serious: Yes (Other)
  Sender: FDA-Public Use
  Company Number: US-009507513-2001USA008617

PATIENT
  Sex: Female
  Weight: 93.424 kg

DRUGS (2)
  1. NUVARING [Suspect]
     Active Substance: ETHINYL ESTRADIOL\ETONOGESTREL
     Indication: Contraception
     Dosage: 1 RING (REPORTED AS 0.15/0.12 MG) FOR 3 WEEKS THEN OUT FOR 1 WEEK
     Route: 067
     Dates: start: 20191224
  2. WELLBUTRIN [Concomitant]
     Active Substance: BUPROPION HYDROCHLORIDE
     Dosage: UNK

REACTIONS (3)
  - Vulvovaginal injury [Not Recovered/Not Resolved]
  - Device dislocation [Unknown]
  - Vaginal haemorrhage [Not Recovered/Not Resolved]
